FAERS Safety Report 6791234-X (Version None)
Quarter: 2010Q2

REPORT INFORMATION
  Report Type: 
  Country: None (occurrence: None)
  Receive Date: 20100624
  Receipt Date: 20100614
  Transmission Date: 20101027
  Serious: Yes (Other)
  Sender: FDA-Public Use
  Company Number: JP-PFIZER INC-2010074333

PATIENT
  Age: 80 Year
  Sex: Female

DRUGS (4)
  1. ZITHROMAC SR [Suspect]
     Indication: INFECTION
     Dosage: 2 G, 1X/DAY
     Route: 048
     Dates: start: 20100605, end: 20100605
  2. AMARYL [Concomitant]
     Dosage: 2 MG, 2X/DAY
     Route: 048
     Dates: end: 20100605
  3. AMARYL [Concomitant]
     Dosage: UNK
     Dates: start: 20100606
  4. CRAVIT [Concomitant]
     Dosage: UNK
     Dates: start: 20100531, end: 20100605

REACTIONS (1)
  - DIABETES MELLITUS INADEQUATE CONTROL [None]
